FAERS Safety Report 5798240-2 (Version None)
Quarter: 2008Q2

REPORT INFORMATION
  Report Type: 
  Country: None (occurrence: None)
  Receive Date: 20080630
  Receipt Date: 20080611
  Transmission Date: 20081010
  Serious: Yes (Other)
  Sender: FDA-Public Use
  Company Number: 19598

PATIENT
  Age: 40 Year
  Sex: Female

DRUGS (3)
  1. METHOTREXATE [Suspect]
     Dosage: 10 MG SC
     Route: 058
     Dates: start: 20080528, end: 20080528
  2. FOLIC ACID [Concomitant]
  3. HUMIRA [Concomitant]

REACTIONS (3)
  - DERMATITIS ALLERGIC [None]
  - DRY THROAT [None]
  - THROAT IRRITATION [None]
